FAERS Safety Report 23070249 (Version 1)
Quarter: 2023Q4

REPORT INFORMATION
  Report Type: Spontaneous
  Country: US (occurrence: US)
  Receive Date: 20231016
  Receipt Date: 20231016
  Transmission Date: 20240110
  Serious: Yes (Death, Other)
  Sender: FDA-Public Use
  Company Number: US-AMGEN-USASP2023180780

PATIENT
  Age: 54 Year
  Sex: Female

DRUGS (4)
  1. XGEVA [Suspect]
     Active Substance: DENOSUMAB
     Indication: Inflammatory carcinoma of the breast
     Dosage: UNK
     Route: 065
  2. PEMBROLIZUMAB [Suspect]
     Active Substance: PEMBROLIZUMAB
     Indication: Inflammatory carcinoma of the breast
     Dosage: UNK
     Route: 065
  3. PACLITAXEL [Concomitant]
     Active Substance: PACLITAXEL
     Indication: Inflammatory carcinoma of the breast
  4. CAPECITABINE [Concomitant]
     Active Substance: CAPECITABINE
     Indication: Inflammatory carcinoma of the breast
     Dosage: UNK
     Dates: start: 202111

REACTIONS (4)
  - Death [Fatal]
  - Malignant pleural effusion [Unknown]
  - Chylothorax [Unknown]
  - Off label use [Unknown]
